FAERS Safety Report 6562003-0 (Version None)
Quarter: 2010Q1

REPORT INFORMATION
  Report Type: 
  Country: None (occurrence: None)
  Receive Date: 20100130
  Receipt Date: 20091110
  Transmission Date: 20100710
  Serious: No
  Sender: FDA-Public Use
  Company Number: PR-ABBOTT-09P-131-0607881-00

PATIENT
  Sex: Female
  Weight: 68.1 kg

DRUGS (3)
  1. HUMIRA [Suspect]
     Indication: RHEUMATOID ARTHRITIS
     Dosage: 1 PEN/SYRINGE EVERY 15 DAYS
     Route: 058
     Dates: end: 20090901
  2. MIX OF PHENERGAN WITH CODEINE PLUS CELESTONE AND GILTUSS [Concomitant]
     Indication: COUGH
  3. MIX OF PHENERGAN WITH CODEINE PLUS CELESTONE AND GILTUSS [Concomitant]
     Indication: DYSPHONIA

REACTIONS (3)
  - COUGH [None]
  - DRY MOUTH [None]
  - DYSPHONIA [None]
